FAERS Safety Report 21317830 (Version 1)
Quarter: 2022Q3

REPORT INFORMATION
  Report Type: Spontaneous
  Country: US (occurrence: US)
  Receive Date: 20220911
  Receipt Date: 20220911
  Transmission Date: 20221027
  Serious: No
  Sender: FDA-Public Use
  Company Number: US-SA-SAC20220829000593

PATIENT
  Age: 7 Month
  Sex: Male
  Weight: 8.62 kg

DRUGS (1)
  1. DUPIXENT [Suspect]
     Active Substance: DUPILUMAB
     Indication: Dermatitis atopic
     Dosage: 200MG EVERY 4 WEEK
     Route: 058
     Dates: start: 20220816

REACTIONS (8)
  - Dermatitis atopic [Unknown]
  - Constipation [Unknown]
  - Erythema [Recovering/Resolving]
  - Skin ulcer [Unknown]
  - Pruritus [Unknown]
  - Skin fissures [Unknown]
  - Skin exfoliation [Unknown]
  - Rash [Unknown]
